FAERS Safety Report 7675847-9 (Version None)
Quarter: 2011Q3

REPORT INFORMATION
  Report Type: 
  Country: None (occurrence: None)
  Receive Date: 20110810
  Receipt Date: 20110801
  Transmission Date: 20111222
  Serious: Yes (Hospitalization)
  Sender: FDA-Public Use
  Company Number: GB-BRISTOL-MYERS SQUIBB COMPANY-15938616

PATIENT
  Age: 61 Year
  Sex: Female

DRUGS (1)
  1. IFOSFAMIDE [Suspect]
     Indication: SYNOVIAL SARCOMA

REACTIONS (2)
  - ACUTE HEPATIC FAILURE [None]
  - ENCEPHALOPATHY [None]
